FAERS Safety Report 17018081 (Version 6)
Quarter: 2020Q2

REPORT INFORMATION
  Report Type: Report from Study
  Country: US (occurrence: US)
  Receive Date: 20191111
  Receipt Date: 20200526
  Transmission Date: 20200713
  Serious: Yes (Death, Hospitalization, Other)
  Sender: FDA-Public Use
  Company Number: US-ACTELION-A-US2019-190376

PATIENT
  Age: 64 Year
  Sex: Female
  Weight: 79.37 kg

DRUGS (14)
  1. WARFARIN [Concomitant]
     Active Substance: WARFARIN
  2. AURYXIA [Concomitant]
     Active Substance: TETRAFERRIC TRICITRATE DECAHYDRATE
     Dosage: 1 G
  3. DIGOXIN. [Concomitant]
     Active Substance: DIGOXIN
     Dosage: 0.125 MG
  4. OPSUMIT [Suspect]
     Active Substance: MACITENTAN
     Dosage: 10 MG, QD
     Route: 048
     Dates: end: 201909
  5. SIMVASTATIN. [Concomitant]
     Active Substance: SIMVASTATIN
     Dosage: 40 MG
  6. PANTOPRAZOLE SODIUM. [Concomitant]
     Active Substance: PANTOPRAZOLE SODIUM
     Dosage: 40 MG
  7. REVATIO [Concomitant]
     Active Substance: SILDENAFIL CITRATE
  8. LATANOPROST. [Concomitant]
     Active Substance: LATANOPROST
  9. METOPROLOL TARTRATE. [Concomitant]
     Active Substance: METOPROLOL TARTRATE
     Dosage: 50 MG
  10. DOXEPIN HCL [Concomitant]
     Active Substance: DOXEPIN HYDROCHLORIDE
     Dosage: 25 MG
  11. LANTUS [Concomitant]
     Active Substance: INSULIN GLARGINE
     Dosage: 100 UNK
  12. OPSUMIT [Suspect]
     Active Substance: MACITENTAN
     Indication: PULMONARY ARTERIAL HYPERTENSION
     Dosage: 10 MG, QD
     Route: 048
  13. MIRCERA [Concomitant]
     Active Substance: METHOXY POLYETHYLENE GLYCOL-EPOETIN BETA
     Dosage: 50 MCG
  14. VENOFER [Concomitant]
     Active Substance: IRON SUCROSE
     Dosage: 20 MG

REACTIONS (32)
  - Pulmonary oedema [Unknown]
  - Malaise [Unknown]
  - Coagulopathy [Unknown]
  - Oxygen saturation decreased [Unknown]
  - Pulmonary hypertension [Unknown]
  - Liver function test abnormal [Unknown]
  - End stage renal disease [Unknown]
  - Neurodermatitis [Unknown]
  - Hospitalisation [Unknown]
  - Atrial fibrillation [Unknown]
  - Dialysis [Unknown]
  - Congestive hepatopathy [Unknown]
  - International normalised ratio decreased [Unknown]
  - Fatigue [Unknown]
  - Blood creatinine abnormal [Unknown]
  - Alanine aminotransferase increased [Unknown]
  - Dizziness [Unknown]
  - Dyspnoea [Unknown]
  - Blood bilirubin increased [Unknown]
  - Haemoglobin decreased [Unknown]
  - Rash [Unknown]
  - Palpitations [Unknown]
  - Heart rate abnormal [Unknown]
  - Acute respiratory failure [Unknown]
  - Hypotension [Unknown]
  - Aspartate aminotransferase increased [Unknown]
  - Presyncope [Unknown]
  - Tachycardia [Unknown]
  - Death [Fatal]
  - Pleural effusion [Unknown]
  - Pericardial effusion [Unknown]
  - Fall [Unknown]

NARRATIVE: CASE EVENT DATE: 201910
